FAERS Safety Report 9809170 (Version 2)
Quarter: 2014Q1

REPORT INFORMATION
  Report Type: Spontaneous
  Country: US (occurrence: US)
  Receive Date: 20140110
  Receipt Date: 20140120
  Transmission Date: 20141002
  Serious: Yes (Other)
  Sender: FDA-Public Use
  Company Number: PHEH2014US000751

PATIENT
  Sex: Female

DRUGS (3)
  1. FAMVIR [Suspect]
     Indication: HERPES VIRUS INFECTION
     Dosage: UNK UKN, UNK
  2. ZOVIRAX [Suspect]
     Indication: HERPES VIRUS INFECTION
     Dosage: UNK UKN, UNK
  3. MORPHINE [Suspect]
     Dosage: UNK UKN, UNK

REACTIONS (1)
  - Amnesia [Unknown]
